FAERS Safety Report 22102691 (Version 1)
Quarter: 2023Q1

REPORT INFORMATION
  Report Type: Spontaneous
  Country: US (occurrence: US)
  Receive Date: 20230316
  Receipt Date: 20230316
  Transmission Date: 20230417
  Serious: No
  Sender: FDA-Public Use
  Company Number: US-PFIZER INC-202300107172

PATIENT
  Age: 16 Year
  Sex: Female
  Weight: 105.23 kg

DRUGS (1)
  1. GENOTROPIN [Suspect]
     Active Substance: SOMATROPIN
     Dosage: 3.4 MG

REACTIONS (2)
  - Device use issue [Unknown]
  - Device breakage [Unknown]
